FAERS Safety Report 5485414-3 (Version None)
Quarter: 2007Q4

REPORT INFORMATION
  Report Type: 
  Country: None (occurrence: None)
  Receive Date: 20071002
  Receipt Date: 20061011
  Transmission Date: 20080405
  Serious: No
  Sender: FDA-Public Use
  Company Number: 2006125079

PATIENT
  Sex: Male

DRUGS (1)
  1. TESTOSTERONE CYPIONATE [Suspect]

REACTIONS (1)
  - DERMATITIS ALLERGIC [None]
